FAERS Safety Report 12786128 (Version 3)
Quarter: 2016Q4

REPORT INFORMATION
  Report Type: Spontaneous
  Country: US (occurrence: US)
  Receive Date: 20160927
  Receipt Date: 20161028
  Transmission Date: 20170207
  Serious: Yes (Hospitalization, Other)
  Sender: FDA-Public Use
  Company Number: US-PFIZER INC-2016436028

PATIENT
  Age: 65 Year
  Sex: Male
  Weight: 51 kg

DRUGS (12)
  1. SUTENT [Suspect]
     Active Substance: SUNITINIB MALATE
     Indication: NEOPLASM MALIGNANT
     Dosage: 50 MG, CYCLIC (50MG CAPSULE ONE DAILY ; TAKES FOR TWO WEEKS AND REST ONE WEEK)
     Dates: start: 201607
  2. SUTENT [Suspect]
     Active Substance: SUNITINIB MALATE
     Indication: CLEAR CELL RENAL CELL CARCINOMA
     Dosage: 50 MG, CYCLIC (FOR 14 DAYS, THEN 1 WEEK OFF) (DAILY X 2 WEEKS, WITH ONE WEEK, WITH ONE WEEK OFF)
     Route: 048
     Dates: start: 20160613
  3. LASIX [Concomitant]
     Active Substance: FUROSEMIDE
     Dosage: 20 MG, 1X/DAY
     Route: 048
  4. VITAMIN B12 [Concomitant]
     Active Substance: CYANOCOBALAMIN
     Dosage: 1000 UG, UNK
  5. IRON [Concomitant]
     Active Substance: IRON
     Dosage: 65 MG, UNK
  6. ENALAPRIL [Concomitant]
     Active Substance: ENALAPRIL
     Dosage: 10 MG, UNK
  7. CARAFATE [Concomitant]
     Active Substance: SUCRALFATE
     Dosage: UNK (100 MG/ML)
     Route: 048
  8. VITAMIN D2 [Concomitant]
     Active Substance: ERGOCALCIFEROL
     Dosage: 50000 IU, 1 CAPSULE EVERY WEEK
     Route: 048
  9. COMPAZINE [Concomitant]
     Active Substance: PROCHLORPERAZINE MALEATE
     Indication: VOMITING
  10. NEXIUM [Concomitant]
     Active Substance: ESOMEPRAZOLE MAGNESIUM
     Dosage: 40 MG, EVERY DAY
     Route: 048
  11. COMPAZINE [Concomitant]
     Active Substance: PROCHLORPERAZINE MALEATE
     Indication: NAUSEA
     Dosage: 10 MG, AS NEEDED (EVERY 6 HOURS)
     Route: 048
  12. VITAMIN D [Concomitant]
     Active Substance: CHOLECALCIFEROL
     Dosage: UNK (50000 UNIT)

REACTIONS (6)
  - Dehydration [Unknown]
  - Anaemia [Unknown]
  - Neoplasm progression [Unknown]
  - Neutropenia [Unknown]
  - Epigastric discomfort [Unknown]
  - Asthenia [Unknown]

NARRATIVE: CASE EVENT DATE: 20161019
